FAERS Safety Report 6593057-3 (Version None)
Quarter: 2010Q1

REPORT INFORMATION
  Report Type: 
  Country: None (occurrence: None)
  Receive Date: 20100222
  Receipt Date: 20100215
  Transmission Date: 20100710
  Serious: Yes (Death)
  Sender: FDA-Public Use
  Company Number: AT-CELGENEUS-009-21880-10021118

PATIENT
  Age: 79 Year
  Sex: Male
  Weight: 62 kg

DRUGS (10)
  1. REVLIMID [Suspect]
     Indication: MULTIPLE MYELOMA
     Route: 048
     Dates: start: 20100116, end: 20100130
  2. HYDAL [Concomitant]
     Indication: PAIN
     Route: 065
  3. ASPIRIN [Concomitant]
     Indication: THROMBOSIS PROPHYLAXIS
     Route: 065
  4. THYREX [Concomitant]
     Indication: THYROIDECTOMY
     Dosage: 0.1
     Route: 065
  5. MOVICOL [Concomitant]
     Indication: CONSTIPATION PROPHYLAXIS
     Route: 065
  6. CIPRALEX [Concomitant]
     Indication: DEPRESSION
     Route: 065
  7. AMLODIPINE [Concomitant]
     Indication: HYPERTENSION
     Route: 065
  8. LASIX [Concomitant]
     Indication: OEDEMA
     Route: 065
  9. LASIX [Concomitant]
  10. ZOLPIDEM TARTRATE [Concomitant]
     Indication: INSOMNIA
     Route: 065

REACTIONS (1)
  - COLITIS ISCHAEMIC [None]
